FAERS Safety Report 8912370 (Version 1)
Quarter: 2012Q4

REPORT INFORMATION
  Report Type: 
  Country: IT (occurrence: IT)
  Receive Date: 20121116
  Receipt Date: 20121116
  Transmission Date: 20130627
  Serious: Yes (Hospitalization, Other)
  Sender: FDA-Public Use
  Company Number: IT-RANBAXY-2011R1-47123

PATIENT
  Age: 53 Year
  Sex: Male

DRUGS (1)
  1. HYDROCHLOROTHIAZIDE [Suspect]
     Indication: ESSENTIAL HYPERTENSION
     Dosage: 25mg/day
     Route: 065
     Dates: end: 200606

REACTIONS (1)
  - Macular oedema [Recovered/Resolved]
